FAERS Safety Report 17137157 (Version 2)
Quarter: 2024Q2

REPORT INFORMATION
  Report Type: Spontaneous
  Country: IT (occurrence: IT)
  Receive Date: 20191210
  Receipt Date: 20240429
  Transmission Date: 20240715
  Serious: Yes (Other)
  Sender: FDA-Public Use
  Company Number: IT-BRISTOL-MYERS SQUIBB COMPANY-BMS-2019-114898

PATIENT
  Age: 82 Year
  Sex: Male

DRUGS (4)
  1. ELOTUZUMAB [Suspect]
     Active Substance: ELOTUZUMAB
     Indication: Plasma cell myeloma
     Dosage: 900 MILLIGRAM, QCYCLE
     Route: 042
     Dates: start: 20180608, end: 20191112
  2. REVLIMID [Suspect]
     Active Substance: LENALIDOMIDE
     Indication: Plasma cell myeloma
     Dosage: 1 DOSAGE FORM, QD
     Route: 048
     Dates: start: 20180405, end: 20191112
  3. LEUPROLIDE ACETATE [Suspect]
     Active Substance: ISOPROPYL ALCOHOL\LEUPROLIDE ACETATE
     Indication: Neoplasm prostate
     Dosage: 1 DOSAGE FORM, QCYCLE
     Route: 030
     Dates: start: 20190716, end: 20191112
  4. BICALUTAMIDE [Concomitant]
     Active Substance: BICALUTAMIDE
     Indication: Neoplasm prostate
     Dosage: 50 MILLIGRAM
     Route: 048
     Dates: start: 20190716, end: 20191112

REACTIONS (1)
  - Neutropenia [Recovering/Resolving]

NARRATIVE: CASE EVENT DATE: 20191108
